FAERS Safety Report 20669018 (Version 1)
Quarter: 2022Q2

REPORT INFORMATION
  Report Type: Spontaneous
  Country: US (occurrence: US)
  Receive Date: 20220404
  Receipt Date: 20220404
  Transmission Date: 20220721
  Serious: Yes (Hospitalization)
  Sender: FDA-Public Use
  Company Number: US-PFIZER INC-202200462423

PATIENT
  Age: 51 Year
  Sex: Female
  Weight: 54.43 kg

DRUGS (1)
  1. VANCOMYCIN HYDROCHLORIDE [Suspect]
     Active Substance: VANCOMYCIN HYDROCHLORIDE
     Indication: Meningitis bacterial
     Dosage: 3X/DAY (VIA PICC LINE)
     Dates: start: 202106

REACTIONS (8)
  - Renal failure [Unknown]
  - Tooth loss [Unknown]
  - Alopecia [Recovering/Resolving]
  - Onychomadesis [Unknown]
  - Nausea [Unknown]
  - Weight decreased [Unknown]
  - Illness [Unknown]
  - Eating disorder [Unknown]
